FAERS Safety Report 11797417 (Version 1)
Quarter: 2015Q4

REPORT INFORMATION
  Report Type: Spontaneous
  Country: DE (occurrence: DE)
  Receive Date: 20151203
  Receipt Date: 20151203
  Transmission Date: 20160305
  Serious: Yes (Other)
  Sender: FDA-Public Use
  Company Number: DE-SA-2015SA193196

PATIENT
  Age: 33 Year
  Sex: Female
  Weight: 70 kg

DRUGS (12)
  1. NOVAMINSULFON [Concomitant]
     Active Substance: METAMIZOLE
     Indication: RHEUMATOID ARTHRITIS
     Route: 048
     Dates: start: 20140304, end: 20140420
  2. COLESTYRAMINE [Concomitant]
     Active Substance: CHOLESTYRAMINE
     Indication: POISONING
     Route: 048
     Dates: start: 20140404, end: 20140413
  3. AMOXICILLIN. [Concomitant]
     Active Substance: AMOXICILLIN
     Indication: PERIODONTITIS
     Route: 048
     Dates: start: 20140404, end: 20140411
  4. ARAVA [Suspect]
     Active Substance: LEFLUNOMIDE
     Indication: RHEUMATOID ARTHRITIS
     Route: 048
     Dates: start: 20140304, end: 20140403
  5. NOVAMINSULFON [Concomitant]
     Active Substance: METAMIZOLE
     Indication: ARTHRALGIA
     Route: 048
     Dates: start: 20140304, end: 20140420
  6. L-THYROXIN [Concomitant]
     Active Substance: LEVOTHYROXINE SODIUM
     Indication: HYPOTHYROIDISM
     Route: 048
     Dates: start: 20140304, end: 20140420
  7. FOLSAN [Concomitant]
     Active Substance: FOLIC ACID
     Indication: PROPHYLAXIS OF NEURAL TUBE DEFECT
     Route: 048
     Dates: start: 20140402, end: 20140420
  8. AMPICILLIN [Concomitant]
     Active Substance: AMPICILLIN
     Indication: PERIODONTITIS
     Dates: start: 201404, end: 201404
  9. PANTOPRAZOL [Concomitant]
     Active Substance: PANTOPRAZOLE SODIUM
     Indication: GASTROOESOPHAGEAL REFLUX DISEASE
     Route: 048
     Dates: start: 20140304, end: 20140420
  10. HYABAK [Concomitant]
     Indication: KERATITIS
     Route: 047
     Dates: start: 20140331, end: 20140414
  11. TOBRADEX [Concomitant]
     Active Substance: DEXAMETHASONE\TOBRAMYCIN
     Indication: KERATITIS
     Route: 047
     Dates: start: 20140331, end: 20140403
  12. VITAMIN D [Concomitant]
     Active Substance: CHOLECALCIFEROL
     Indication: VITAMIN D DEFICIENCY
     Route: 048
     Dates: start: 20140304, end: 20140420

REACTIONS (3)
  - Product use issue [Unknown]
  - Exposure during pregnancy [Unknown]
  - Abortion spontaneous [Unknown]
